FAERS Safety Report 21261602 (Version 1)
Quarter: 2022Q3

REPORT INFORMATION
  Report Type: Report from Study
  Country: EG (occurrence: EG)
  Receive Date: 20220827
  Receipt Date: 20220827
  Transmission Date: 20221027
  Serious: Yes (Other)
  Sender: FDA-Public Use
  Company Number: EG-NOVARTISPH-NVSC2022EG189235

PATIENT
  Age: 23 Year
  Sex: Female

DRUGS (4)
  1. TASIGNA [Suspect]
     Active Substance: NILOTINIB
     Indication: Chronic myeloid leukaemia
     Dosage: 800 MG, QD (4 CAPS/DAY)
     Route: 048
     Dates: start: 201709, end: 2020
  2. TASIGNA [Suspect]
     Active Substance: NILOTINIB
     Dosage: 600 MG, QD (3 CAPS/DAY)
     Route: 048
     Dates: start: 2020
  3. KETOROLAC TROMETHAMINE [Concomitant]
     Active Substance: KETOROLAC TROMETHAMINE
     Indication: Product used for unknown indication
     Dosage: UNK
     Route: 065
  4. SALINE [Concomitant]
     Active Substance: SODIUM CHLORIDE
     Indication: Product used for unknown indication
     Dosage: UNK
     Route: 042

REACTIONS (7)
  - Biliary obstruction [Recovered/Resolved]
  - Jaundice [Recovered/Resolved]
  - Bile duct stone [Recovered/Resolved]
  - Abdominal pain [Recovered/Resolved]
  - Acne [Recovered/Resolved]
  - Hypersensitivity [Recovered/Resolved]
  - Tumour marker increased [Recovered/Resolved]

NARRATIVE: CASE EVENT DATE: 20190801
